FAERS Safety Report 4816271-3 (Version None)
Quarter: 2005Q4

REPORT INFORMATION
  Report Type: 
  Country: None (occurrence: None)
  Receive Date: 20051031
  Receipt Date: 20051021
  Transmission Date: 20060501
  Serious: Yes (Disabling)
  Sender: FDA-Public Use
  Company Number: US-MERCK-0510USA08496

PATIENT
  Age: 65 Year
  Sex: Male

DRUGS (4)
  1. ZOCOR [Suspect]
     Indication: CARDIAC DISORDER
     Route: 048
     Dates: start: 20051001
  2. ZOCOR [Suspect]
     Route: 048
     Dates: start: 20020101
  3. ZOCOR [Suspect]
     Route: 048
     Dates: start: 20020101, end: 20051001
  4. [THERAPY UNSPECIFIED] [Concomitant]
     Route: 048

REACTIONS (6)
  - FEELING ABNORMAL [None]
  - INJURY [None]
  - LOSS OF CONSCIOUSNESS [None]
  - MUSCLE SPASMS [None]
  - MUSCLE TWITCHING [None]
  - MYALGIA [None]
